FAERS Safety Report 14018104 (Version 1)
Quarter: 2017Q3

REPORT INFORMATION
  Report Type: Spontaneous
  Country: US (occurrence: US)
  Receive Date: 20170928
  Receipt Date: 20170928
  Transmission Date: 20171128
  Serious: No
  Sender: FDA-Public Use
  Company Number: US-AMGEN-USASP2017145723

PATIENT
  Age: 57 Year

DRUGS (1)
  1. ENBREL [Suspect]
     Active Substance: ETANERCEPT
     Indication: PSORIATIC ARTHROPATHY
     Dosage: 50 MG, QWK
     Route: 065
     Dates: start: 20170920

REACTIONS (4)
  - Abdominal discomfort [Unknown]
  - Chest discomfort [Unknown]
  - Nausea [Unknown]
  - Flatulence [Unknown]

NARRATIVE: CASE EVENT DATE: 20170920
